FAERS Safety Report 17832784 (Version 1)
Quarter: 2020Q2

REPORT INFORMATION
  Report Type: Spontaneous
  Country: US (occurrence: US)
  Receive Date: 20200528
  Receipt Date: 20200528
  Transmission Date: 20200714
  Serious: No
  Sender: FDA-Public Use
  Company Number: US-UCBSA-2019040222

PATIENT
  Age: 44 Year
  Sex: Female

DRUGS (1)
  1. CIMZIA [Suspect]
     Active Substance: CERTOLIZUMAB PEGOL
     Indication: PRODUCT USED FOR UNKNOWN INDICATION
     Dosage: 200 MILLIGRAM, EV 2 WEEKS(QOW)
     Route: 058
     Dates: start: 201804, end: 2019

REACTIONS (5)
  - Injection site swelling [Unknown]
  - Drug ineffective [Unknown]
  - Headache [Unknown]
  - Discomfort [Unknown]
  - Joint swelling [Unknown]

NARRATIVE: CASE EVENT DATE: 20190420
